FAERS Safety Report 8057987-8 (Version None)
Quarter: 2012Q1

REPORT INFORMATION
  Report Type: 
  Country: None (occurrence: None)
  Receive Date: 20120120
  Receipt Date: 20120116
  Transmission Date: 20120608
  Serious: Yes (Other)
  Sender: FDA-Public Use
  Company Number: US-PFIZER INC-2012012747

PATIENT
  Sex: Male
  Weight: 81.633 kg

DRUGS (1)
  1. LYRICA [Suspect]
     Indication: NEURALGIA
     Dosage: 50 MG,EVERY EIGHT HOURS
     Route: 048
     Dates: start: 20120113, end: 20120114

REACTIONS (3)
  - LOCAL SWELLING [None]
  - SWELLING FACE [None]
  - URTICARIA [None]
